FAERS Safety Report 6999443-1 (Version None)
Quarter: 2010Q3

REPORT INFORMATION
  Report Type: 
  Country: None (occurrence: None)
  Receive Date: 20100920
  Receipt Date: 20100521
  Transmission Date: 20110219
  Serious: No
  Sender: FDA-Public Use
  Company Number: US-ASTRAZENECA-2010SE23658

PATIENT
  Age: 71 Year
  Sex: Female

DRUGS (2)
  1. SEROQUEL XR [Suspect]
     Indication: MAJOR DEPRESSION
     Route: 048
     Dates: start: 20090625, end: 20100105
  2. LUNESTA [Concomitant]
     Indication: SLEEP DISORDER

REACTIONS (1)
  - FACIAL SPASM [None]
